FAERS Safety Report 10168163 (Version 2)
Quarter: 2014Q2

REPORT INFORMATION
  Report Type: Spontaneous
  Country: US (occurrence: US)
  Receive Date: 20140512
  Receipt Date: 20140512
  Transmission Date: 20141212
  Serious: Yes (Hospitalization)
  Sender: FDA-Public Use
  Company Number: PHEH2014US009092

PATIENT
  Sex: Male

DRUGS (3)
  1. EXELON PATCH [Suspect]
     Indication: DEMENTIA ALZHEIMER^S TYPE
     Dosage: 4.5 MG, QD
     Route: 062
  2. EXELON PATCH [Suspect]
     Dosage: 9.5 MG, QD
     Route: 062
  3. EXELON PATCH [Suspect]
     Dosage: 13.3 MG, QD
     Route: 062

REACTIONS (16)
  - Bladder disorder [Unknown]
  - Pollakiuria [Unknown]
  - Neuropathy peripheral [Unknown]
  - Prostatic disorder [Unknown]
  - Palpitations [Unknown]
  - Dysstasia [Unknown]
  - Sepsis [Unknown]
  - Asthenia [Unknown]
  - Urinary tract infection [Unknown]
  - Pyrexia [Unknown]
  - Malaise [Unknown]
  - White blood cell count increased [Unknown]
  - Tremor [Unknown]
  - Vomiting [Unknown]
  - Hypertension [Unknown]
  - Memory impairment [Unknown]
